FAERS Safety Report 6556952-7 (Version None)
Quarter: 2010Q1

REPORT INFORMATION
  Report Type: 
  Country: None (occurrence: None)
  Receive Date: 20100128
  Receipt Date: 20100125
  Transmission Date: 20100710
  Serious: Yes (Death, Hospitalization, Other)
  Sender: FDA-Public Use
  Company Number: PHEH2008US05645

PATIENT
  Sex: Male
  Weight: 72.562 kg

DRUGS (21)
  1. AREDIA [Suspect]
     Dosage: 90 MG, EVERY MONTH
     Route: 042
  2. ZOMETA [Suspect]
     Dosage: 4 MG, UNK
     Dates: end: 20050101
  3. INTERFERON [Concomitant]
  4. MORPHINE SULFATE [Concomitant]
  5. VALTREX [Concomitant]
  6. GABAPENTIN [Concomitant]
  7. OXYCODONE [Concomitant]
  8. OXYCODONE HCL AND ACETAMINOPHEN [Concomitant]
  9. ROXICET [Concomitant]
  10. DIAZEPAM [Concomitant]
  11. HYDROCODONE [Concomitant]
  12. LISINOPRIL [Concomitant]
  13. ATENOLOL [Concomitant]
     Dosage: UNK
  14. CARDIZEM [Concomitant]
     Dosage: UNK
  15. COUMADIN [Concomitant]
     Dosage: UNK
  16. ZANTAC [Concomitant]
     Dosage: BID
  17. MONOPRIL [Concomitant]
     Dosage: UNK
  18. XANAX [Concomitant]
     Dosage: 0.5MG PRN
  19. FLAGYL [Concomitant]
     Dosage: 500MG TID
     Route: 048
  20. COMPAZINE [Concomitant]
     Dosage: 10MG PO Q6HRS PRN
     Route: 048
  21. ATARAX [Concomitant]
     Dosage: UNK

REACTIONS (33)
  - ANHEDONIA [None]
  - ANXIETY [None]
  - ASTHENIA [None]
  - BACK PAIN [None]
  - BACTERIAL TEST POSITIVE [None]
  - BONE DISORDER [None]
  - CARDIAC ARREST [None]
  - CARDIAC DISORDER [None]
  - CHEST PAIN [None]
  - COLLAPSE OF LUNG [None]
  - CYST [None]
  - DEBRIDEMENT [None]
  - DISABILITY [None]
  - EXCESSIVE GRANULATION TISSUE [None]
  - GAIT DISTURBANCE [None]
  - HAEMORRHAGE [None]
  - HYPOTENSION [None]
  - INJURY [None]
  - JOINT STABILISATION [None]
  - MUSCULOSKELETAL DISCOMFORT [None]
  - OEDEMA PERIPHERAL [None]
  - OSTEITIS [None]
  - OSTEONECROSIS [None]
  - PAIN [None]
  - RESORPTION BONE INCREASED [None]
  - SPINAL COMPRESSION FRACTURE [None]
  - SPINAL CORPECTOMY [None]
  - SPINAL DECOMPRESSION [None]
  - SPINAL FUSION SURGERY [None]
  - SQUAMOUS CELL CARCINOMA [None]
  - SURGERY [None]
  - THORACOTOMY [None]
  - TOOTH EXTRACTION [None]
